FAERS Safety Report 18659871 (Version 1)
Quarter: 2020Q4

REPORT INFORMATION
  Report Type: Spontaneous
  Country: US (occurrence: US)
  Receive Date: 20201223
  Receipt Date: 20201223
  Transmission Date: 20210114
  Serious: Yes (Other)
  Sender: FDA-Public Use
  Company Number: US-STRONGBRIDGE BIOPHARMA-2020-STR-000325

PATIENT
  Age: 65 Year
  Sex: Female

DRUGS (1)
  1. KEVEYIS [Suspect]
     Active Substance: DICHLORPHENAMIDE
     Indication: FAMILIAL PERIODIC PARALYSIS
     Dosage: 75 MG, BID
     Route: 048

REACTIONS (7)
  - Seasonal affective disorder [Recovering/Resolving]
  - Disease progression [Recovering/Resolving]
  - Wrong technique in product usage process [Not Recovered/Not Resolved]
  - COVID-19 [Recovering/Resolving]
  - Blood bicarbonate decreased [Recovering/Resolving]
  - Dyspnoea [Recovering/Resolving]
  - Neoplasm malignant [Recovering/Resolving]

NARRATIVE: CASE EVENT DATE: 202003
